FAERS Safety Report 11906472 (Version 3)
Quarter: 2016Q1

REPORT INFORMATION
  Report Type: Spontaneous
  Country: US (occurrence: US)
  Receive Date: 20160111
  Receipt Date: 20160226
  Transmission Date: 20160526
  Serious: No
  Sender: FDA-Public Use
  Company Number: US-PFIZER INC-2015477617

PATIENT
  Age: 56 Year
  Sex: Female
  Weight: 108.41 kg

DRUGS (19)
  1. SUTENT [Suspect]
     Active Substance: SUNITINIB MALATE
     Dosage: 25 MG, DAILY
     Route: 048
     Dates: start: 20151208
  2. SUTENT [Suspect]
     Active Substance: SUNITINIB MALATE
     Indication: INTRAOCULAR MELANOMA
     Dosage: 25MG CAPSULE, ONCE A DAY AND AT NIGHT
     Route: 048
     Dates: start: 20151201
  3. OMEPRAZOLE. [Concomitant]
     Active Substance: OMEPRAZOLE
     Dosage: THE LAST MONTH HER DOSE INCREASED TO 40MG
     Dates: start: 201511
  4. RESTORIL [Concomitant]
     Active Substance: TEMAZEPAM
     Indication: SLEEP DISORDER
     Dosage: 15 MG, AS NEEDED
  5. GLIPIZIDE. [Concomitant]
     Active Substance: GLIPIZIDE
     Indication: TYPE 2 DIABETES MELLITUS
     Dosage: 5MG TABLET, HALF A DOSE TWICE A DAY
  6. OMEPRAZOLE. [Concomitant]
     Active Substance: OMEPRAZOLE
     Dosage: AFTER HER FIRST THROAT TEST, SHE WAS PLACED ON ONE 20MG CAPSULE DAILY.
     Dates: start: 2006
  7. RALOXIFENE. [Concomitant]
     Active Substance: RALOXIFENE
     Indication: BONE DISORDER
     Dosage: 1 DAILY 16MG
  8. CALCIUM/VITAMIN D3 [Concomitant]
     Dosage: 2 CHEWABLE ADULT GUMMIES A DAY
     Dates: start: 2005
  9. OMEPRAZOLE. [Concomitant]
     Active Substance: OMEPRAZOLE
     Indication: GASTROOESOPHAGEAL REFLUX DISEASE
     Dosage: 20MG CAPSULES, 2 CAPSULES IN THE MORNING AND TWO AT NIGHT
     Dates: start: 2006
  10. ASPIRIN. [Concomitant]
     Active Substance: ASPIRIN
     Indication: PROPHYLAXIS
     Dosage: 81MG ONCE A DAY
     Dates: start: 201506
  11. LYRICA [Concomitant]
     Active Substance: PREGABALIN
     Indication: PAIN IN EXTREMITY
     Dosage: 75MG, ONCE IN MORNING AND ONCE AT NIGHT
     Dates: start: 2014
  12. LIVALO [Concomitant]
     Active Substance: PITAVASTATIN CALCIUM
     Indication: BLOOD CHOLESTEROL ABNORMAL
     Dosage: 2MG TABLET ONCE A DAY
     Dates: end: 201512
  13. VITAMIN B12 [Concomitant]
     Active Substance: CYANOCOBALAMIN
     Indication: VITAMIN B12 DECREASED
     Dosage: VIAL ONCE MONTHLY
     Dates: start: 2005
  14. RALOXIFENE. [Concomitant]
     Active Substance: RALOXIFENE
     Indication: HORMONE THERAPY
  15. METFORMIN [Concomitant]
     Active Substance: METFORMIN HYDROCHLORIDE
     Indication: TYPE 2 DIABETES MELLITUS
     Dosage: 500MG TABLET TWICE DAILY
     Dates: start: 2013
  16. LISINOPRIL. [Concomitant]
     Active Substance: LISINOPRIL
     Dosage: 10MG AT NIGHT
  17. SYNTHROID [Concomitant]
     Active Substance: LEVOTHYROXINE SODIUM
     Indication: THYROID DISORDER
     Dosage: 75MG, ONCE A DAY IN THE MORNING
     Dates: start: 2005
  18. IRON [Concomitant]
     Active Substance: IRON
     Indication: ANAEMIA
     Dosage: ONE TABLET, ONCE DAILY
     Dates: start: 2005
  19. VITAMIN D [Concomitant]
     Active Substance: CHOLECALCIFEROL
     Indication: VITAMIN D DECREASED
     Dosage: 2 A DAY
     Dates: start: 2005

REACTIONS (2)
  - Pruritus [Recovered/Resolved]
  - Product use issue [Not Recovered/Not Resolved]

NARRATIVE: CASE EVENT DATE: 201512
